FAERS Safety Report 17326311 (Version 4)
Quarter: 2022Q2

REPORT INFORMATION
  Report Type: Spontaneous
  Country: US (occurrence: US)
  Receive Date: 20200127
  Receipt Date: 20220504
  Transmission Date: 20220721
  Serious: No
  Sender: FDA-Public Use
  Company Number: US-PFIZER INC-2019294224

PATIENT
  Age: 62 Year
  Sex: Female

DRUGS (3)
  1. LYRICA [Suspect]
     Active Substance: PREGABALIN
     Indication: Neuropathy peripheral
     Dosage: 100 MG, 2X/DAY
     Route: 048
  2. LYRICA [Suspect]
     Active Substance: PREGABALIN
     Indication: Sjogren^s syndrome
     Dosage: 100 MG, 1X/DAY
     Route: 048
  3. LYRICA [Suspect]
     Active Substance: PREGABALIN
     Indication: Systemic lupus erythematosus
     Dosage: 100 MG, 1X/DAY (1 CAPSULE ONCE A DAY 90 CAPSULES 90 DAYS)
     Route: 048

REACTIONS (1)
  - Essential hypertension [Unknown]
